FAERS Safety Report 19776177 (Version 2)
Quarter: 2021Q4

REPORT INFORMATION
  Report Type: Spontaneous
  Country: JP (occurrence: JP)
  Receive Date: 20210901
  Receipt Date: 20211012
  Transmission Date: 20220303
  Serious: Yes (Other)
  Sender: FDA-Public Use
  Company Number: JP-TAKEDA-2021TJP080520

PATIENT
  Sex: Female

DRUGS (1)
  1. LEUPROLIDE ACETATE [Suspect]
     Active Substance: LEUPROLIDE ACETATE
     Indication: Uterine leiomyoma
     Dosage: UNK, Q4WEEKS
     Route: 058

REACTIONS (12)
  - Breast cancer [Unknown]
  - Oedema peripheral [Unknown]
  - Nasopharyngitis [Unknown]
  - Blood creatine phosphokinase increased [Unknown]
  - Heavy menstrual bleeding [Unknown]
  - Genital haemorrhage [Unknown]
  - Constipation [Unknown]
  - Malaise [Unknown]
  - Headache [Unknown]
  - Intermenstrual bleeding [Unknown]
  - Hot flush [Unknown]
  - Hepatic enzyme increased [Recovering/Resolving]
